FAERS Safety Report 19874817 (Version 2)
Quarter: 2022Q2

REPORT INFORMATION
  Report Type: Spontaneous
  Country: GB (occurrence: GB)
  Receive Date: 20210923
  Receipt Date: 20220524
  Transmission Date: 20220721
  Serious: Yes (Disabling, Other)
  Sender: FDA-Public Use
  Company Number: None

PATIENT
  Age: 24 Year
  Sex: Female
  Weight: 52 kg

DRUGS (2)
  1. PROTOPIC [Suspect]
     Active Substance: TACROLIMUS
     Indication: Eczema
     Dosage: AS REQUIRED
     Route: 061
     Dates: start: 20200101, end: 20201220
  2. CLOBETASOL [Suspect]
     Active Substance: CLOBETASOL
     Indication: Eczema
     Dosage: AS DOCTOR ADVISED, WHEN NECESSARY.
     Route: 061
     Dates: start: 20130101, end: 20201220

REACTIONS (3)
  - Dependence [Not Recovered/Not Resolved]
  - Topical steroid withdrawal reaction [Not Recovered/Not Resolved]
  - Temperature regulation disorder [Not Recovered/Not Resolved]

NARRATIVE: CASE EVENT DATE: 20190101
